FAERS Safety Report 9323645 (Version 1)
Quarter: 2013Q2

REPORT INFORMATION
  Report Type: Report from Study
  Country: US (occurrence: US)
  Receive Date: 20130603
  Receipt Date: 20130603
  Transmission Date: 20140414
  Serious: Yes (Hospitalization)
  Sender: FDA-Public Use
  Company Number: PHHO2013US007124

PATIENT
  Age: 75 Year
  Sex: Female
  Weight: 72.5 kg

DRUGS (7)
  1. SOM230 [Suspect]
     Indication: MEDULLARY THYROID CANCER
     Dosage: 40 MG EVER 28 DAYS
     Route: 030
     Dates: start: 20130116, end: 20130508
  2. AFINITOR [Suspect]
     Indication: MEDULLARY THYROID CANCER
     Dosage: 10 MG, QD
     Route: 048
     Dates: start: 20130116, end: 20130522
  3. LANTUS [Concomitant]
     Dosage: 15 U, QD
  4. PROAIR HFA [Concomitant]
     Dosage: UNK
  5. SYMBICORT [Concomitant]
     Dosage: 160 MCG=4.5 CG/INH
  6. XANAX [Concomitant]
     Dosage: 0.25 MG, PRN
     Route: 048
  7. ASPIRIN [Concomitant]
     Dosage: 81 MG, QD
     Route: 048

REACTIONS (1)
  - Pneumonitis [Unknown]
